FAERS Safety Report 8465495 (Version 3)
Quarter: 2015Q1

REPORT INFORMATION
  Report Type: Spontaneous
  Country: US (occurrence: US)
  Receive Date: 20120319
  Receipt Date: 20150310
  Transmission Date: 20150721
  Serious: Yes (Hospitalization, Other)
  Sender: FDA-Public Use
  Company Number: US-ROCHE-783774

PATIENT
  Age: 22 Year
  Sex: Male
  Weight: 77.18 kg

DRUGS (1)
  1. ACCUTANE [Suspect]
     Active Substance: ISOTRETINOIN
     Indication: ACNE
     Dosage: 40 AND 20 (UNITS NOT PROVIDED)
     Route: 065
     Dates: start: 199902, end: 199907

REACTIONS (6)
  - Stress [Unknown]
  - Intestinal obstruction [Unknown]
  - Inflammatory bowel disease [Unknown]
  - Pulmonary embolism [Unknown]
  - Colitis ulcerative [Unknown]
  - Dry skin [Unknown]

NARRATIVE: CASE EVENT DATE: 19990325
